FAERS Safety Report 6752117-4 (Version None)
Quarter: 2010Q2

REPORT INFORMATION
  Report Type: 
  Country: None (occurrence: None)
  Receive Date: 20100601
  Receipt Date: 20100601
  Transmission Date: 20101027
  Serious: Yes (Death, Life-Threatening, Hospitalization, Other)
  Sender: FDA-Public Use
  Company Number: None

PATIENT
  Age: 85 Year
  Sex: Male
  Weight: 49.4421 kg

DRUGS (5)
  1. ZOSYN [Suspect]
     Indication: INFECTION
     Dosage: ZOSYN IV
     Route: 042
     Dates: start: 20100518, end: 20100526
  2. METFORMIN HCL [Concomitant]
  3. GLUCOTROL [Concomitant]
  4. PROSTAT [Concomitant]
  5. NITROFURANTOIN [Concomitant]

REACTIONS (3)
  - ANAEMIA [None]
  - BLOOD GLUCOSE DECREASED [None]
  - MEDICATION ERROR [None]
